FAERS Safety Report 5852737-5 (Version None)
Quarter: 2008Q3

REPORT INFORMATION
  Report Type: 
  Country: None (occurrence: None)
  Receive Date: 20080821
  Receipt Date: 20080818
  Transmission Date: 20090109
  Serious: Yes (Hospitalization, Other)
  Sender: FDA-Public Use
  Company Number: DE-AVENTIS-200811944DE

PATIENT
  Age: 68 Year
  Sex: Male

DRUGS (4)
  1. ENOXAPARIN SODIUM [Suspect]
     Indication: ATRIAL FIBRILLATION
     Route: 058
     Dates: start: 20080618, end: 20080621
  2. MARCUMAR [Concomitant]
     Indication: ATRIAL FIBRILLATION
     Dosage: DOSE: ACCORDING TO INR
     Route: 048
     Dates: end: 20080617
  3. METOHEXAL                          /00376902/ [Concomitant]
     Route: 048
  4. SIMVAHEXAL [Concomitant]
     Route: 048

REACTIONS (2)
  - CONJUNCTIVITIS [None]
  - HERPES ZOSTER OPHTHALMIC [None]
